FAERS Safety Report 6299292-6 (Version None)
Quarter: 2009Q3

REPORT INFORMATION
  Report Type: 
  Country: None (occurrence: None)
  Receive Date: 20090806
  Receipt Date: 20090803
  Transmission Date: 20100115
  Serious: Yes (Hospitalization)
  Sender: FDA-Public Use
  Company Number: AU-ASTRAZENECA-2009SE06772

PATIENT
  Age: 31863 Day
  Sex: Male
  Weight: 73 kg

DRUGS (4)
  1. TOPROL-XL [Suspect]
     Route: 048
  2. AMIODARONE HYDROCHLORIDE [Suspect]
  3. MADOPAR [Concomitant]
  4. FIBSOL [Concomitant]

REACTIONS (4)
  - ASTHENIA [None]
  - BRADYCARDIA [None]
  - MYOPATHY [None]
  - PARKINSON'S DISEASE [None]
